FAERS Safety Report 8318892-2 (Version None)
Quarter: 2012Q2

REPORT INFORMATION
  Report Type: 
  Country: None (occurrence: None)
  Receive Date: 20120427
  Receipt Date: 20120417
  Transmission Date: 20120825
  Serious: Yes (Hospitalization)
  Sender: FDA-Public Use
  Company Number: US-PFIZER INC-2012015757

PATIENT
  Sex: Female

DRUGS (4)
  1. PROTONIX [Suspect]
     Dosage: UNK
  2. PROCARDIA XL [Suspect]
     Dosage: UNK
  3. ZOLOFT [Suspect]
     Dosage: UNK
     Route: 048
  4. LIPITOR [Suspect]
     Dosage: UNK
     Route: 065

REACTIONS (1)
  - ASTHMA [None]
